FAERS Safety Report 9473199 (Version 1)
Quarter: 2013Q3

REPORT INFORMATION
  Report Type: Spontaneous
  Country: US (occurrence: US)
  Receive Date: 20130823
  Receipt Date: 20130823
  Transmission Date: 20140515
  Serious: No
  Sender: FDA-Public Use
  Company Number: US-BRISTOL-MYERS SQUIBB COMPANY-18754663

PATIENT
  Age: 79 Year
  Sex: Female
  Weight: 58.05 kg

DRUGS (9)
  1. SPRYCEL (CML) TABS 100 MG [Suspect]
     Indication: CHRONIC MYELOID LEUKAEMIA
     Route: 048
     Dates: start: 2013
  2. MIRTAZAPINE [Concomitant]
  3. LEVOTHYROXINE [Concomitant]
  4. PREDNISONE [Concomitant]
  5. METOPROLOL [Concomitant]
  6. VITAMIN D [Concomitant]
  7. MULTIVITAMINS [Concomitant]
  8. MOTRIN [Concomitant]
  9. ZOFRAN [Concomitant]

REACTIONS (3)
  - Nausea [Unknown]
  - Vomiting [Unknown]
  - Diarrhoea [Unknown]
